FAERS Safety Report 5503505-5 (Version None)
Quarter: 2007Q4

REPORT INFORMATION
  Report Type: 
  Country: None (occurrence: None)
  Receive Date: 20071031
  Receipt Date: 20071022
  Transmission Date: 20080405
  Serious: Yes (Hospitalization, Disabling, Other)
  Sender: FDA-Public Use
  Company Number: PH-MERCK-0710PHL00014

PATIENT
  Age: 70 Year
  Sex: Female

DRUGS (1)
  1. FOSAMAX PLUS D [Suspect]
     Indication: HIP FRACTURE
     Route: 048
     Dates: start: 20071013, end: 20071015

REACTIONS (2)
  - DRUG ADMINISTRATION ERROR [None]
  - OESOPHAGEAL PAIN [None]
